FAERS Safety Report 13087440 (Version 1)
Quarter: 2017Q1

REPORT INFORMATION
  Report Type: Spontaneous
  Country: US (occurrence: US)
  Receive Date: 20170105
  Receipt Date: 20170105
  Transmission Date: 20170428
  Serious: Yes (Hospitalization, Other)
  Sender: FDA-Public Use
  Company Number: US-TAKEDA-2017TUS000208

PATIENT
  Age: 36 Year
  Sex: Male
  Weight: 48.3 kg

DRUGS (3)
  1. COLCHICINE. [Suspect]
     Active Substance: COLCHICINE
     Dosage: 4 MG, UNK
     Route: 042
  2. COLCHICINE. [Suspect]
     Active Substance: COLCHICINE
     Indication: GOUTY ARTHRITIS
     Dosage: UNK, QD
     Route: 048
  3. COLCHICINE. [Suspect]
     Active Substance: COLCHICINE
     Dosage: 3.6 MG, QD
     Route: 048

REACTIONS (3)
  - Incorrect route of drug administration [Recovered/Resolved]
  - Toxicity to various agents [Unknown]
  - Overdose [Recovered/Resolved]
